FAERS Safety Report 13677257 (Version 1)
Quarter: 2017Q2

REPORT INFORMATION
  Report Type: Spontaneous
  Country: US (occurrence: US)
  Receive Date: 20170621
  Receipt Date: 20170621
  Transmission Date: 20170830
  Serious: Yes (Other)
  Sender: FDA-Public Use
  Company Number: None

PATIENT
  Age: 46 Year
  Sex: Female
  Weight: 75.6 kg

DRUGS (2)
  1. SERTRALINE HCL 50MG [Suspect]
     Active Substance: SERTRALINE HYDROCHLORIDE
     Indication: POST-TRAUMATIC STRESS DISORDER
     Dates: start: 20170424, end: 20170620
  2. SERTRALINE HCL 50MG [Suspect]
     Active Substance: SERTRALINE HYDROCHLORIDE
     Indication: MAJOR DEPRESSION
     Dates: start: 20170424, end: 20170620

REACTIONS (8)
  - Agitation [None]
  - Depression [None]
  - Abnormal behaviour [None]
  - Product colour issue [None]
  - Screaming [None]
  - Economic problem [None]
  - Anger [None]
  - Suicidal ideation [None]

NARRATIVE: CASE EVENT DATE: 20170620
